FAERS Safety Report 21996664 (Version 1)
Quarter: 2023Q1

REPORT INFORMATION
  Report Type: Spontaneous
  Country: US (occurrence: US)
  Receive Date: 20230215
  Receipt Date: 20230215
  Transmission Date: 20230418
  Serious: Yes (Other)
  Sender: FDA-Public Use
  Company Number: US-MYLANLABS-2023M1016280

PATIENT
  Age: 49 Year
  Sex: Female

DRUGS (5)
  1. CARBOPLATIN [Suspect]
     Active Substance: CARBOPLATIN
     Indication: HER2 mutant non-small cell lung cancer
     Dosage: UNK UNK, CYCLE RECEIVED 4 CYCLES
     Route: 065
     Dates: start: 2021, end: 2021
  2. TRASTUZUMAB [Suspect]
     Active Substance: TRASTUZUMAB
     Indication: HER2 mutant non-small cell lung cancer
     Dosage: 6.4 MILLIGRAM/KILOGRAM, Q3W
     Route: 065
     Dates: start: 202110
  3. TRASTUZUMAB [Suspect]
     Active Substance: TRASTUZUMAB
     Dosage: 5.4 MILLIGRAM/KILOGRAM, Q3W
     Route: 065
  4. PEMETREXED [Suspect]
     Active Substance: PEMETREXED
     Indication: HER2 mutant non-small cell lung cancer
     Dosage: UNK UNK, CYCLE (RECEIVED FOUR CYCLES)
     Route: 065
     Dates: start: 2021, end: 2021
  5. PEMBROLIZUMAB [Suspect]
     Active Substance: PEMBROLIZUMAB
     Indication: HER2 mutant non-small cell lung cancer
     Dosage: UNK, CYCLE (RECEIVED FOUR CYCLES FOLLOWED BY THREE CYCLES OF MAINTENANCE PEMBROLIZUMAB)
     Route: 065
     Dates: start: 2021, end: 2021

REACTIONS (3)
  - Drug ineffective [Unknown]
  - Disease progression [Unknown]
  - Off label use [Unknown]

NARRATIVE: CASE EVENT DATE: 20210101
